FAERS Safety Report 16422827 (Version 3)
Quarter: 2021Q4

REPORT INFORMATION
  Report Type: Report from Study
  Country: US (occurrence: US)
  Receive Date: 20190612
  Receipt Date: 20211004
  Transmission Date: 20220303
  Serious: Yes (Death, Other)
  Sender: FDA-Public Use
  Company Number: US-SHIRE-US201918539

PATIENT
  Age: 87 Year
  Sex: Male

DRUGS (1)
  1. VELAGLUCERASE ALFA [Suspect]
     Active Substance: VELAGLUCERASE ALFA
     Indication: Gaucher^s disease
     Dosage: UNK, Q2WEEKS
     Route: 042
     Dates: start: 20100505, end: 20210909

REACTIONS (5)
  - Death [Fatal]
  - Upper-airway cough syndrome [Not Recovered/Not Resolved]
  - Fatigue [Unknown]
  - Hypersensitivity [Unknown]
  - Infusion related reaction [Unknown]

NARRATIVE: CASE EVENT DATE: 20210909
